FAERS Safety Report 9383046 (Version 2)
Quarter: 2013Q3

REPORT INFORMATION
  Report Type: Report from Study
  Country: BR (occurrence: BR)
  Receive Date: 20130704
  Receipt Date: 20130825
  Transmission Date: 20140515
  Serious: Yes (Death, Other)
  Sender: FDA-Public Use
  Company Number: BR-ROCHE-1223097

PATIENT
  Sex: Male
  Weight: 61 kg

DRUGS (3)
  1. INTERFERON ALFA-2A [Suspect]
     Indication: HEPATITIS C
     Route: 065
     Dates: start: 2011, end: 2011
  2. INTERFERON ALFA-2A [Suspect]
     Route: 065
     Dates: start: 2012
  3. RIBAVIRIN [Suspect]
     Indication: HEPATITIS C
     Route: 065
     Dates: start: 2012

REACTIONS (11)
  - Death [Fatal]
  - Varices oesophageal [Unknown]
  - Hepatic cirrhosis [Unknown]
  - Hypersensitivity [Unknown]
  - Pruritus generalised [Recovered/Resolved]
  - Cholelithiasis [Unknown]
  - Gastrointestinal disorder [Unknown]
  - Thyroid disorder [Unknown]
  - Gastric disorder [Unknown]
  - Hypertension [Unknown]
  - Coagulopathy [Unknown]
